FAERS Safety Report 7283812-9 (Version None)
Quarter: 2011Q1

REPORT INFORMATION
  Report Type: 
  Country: None (occurrence: None)
  Receive Date: 20110131
  Receipt Date: 20110119
  Transmission Date: 20110831
  Serious: Yes (Other)
  Sender: FDA-Public Use
  Company Number: CLOF-1000936

PATIENT
  Age: 18 Year
  Sex: Female
  Weight: 101.2 kg

DRUGS (15)
  1. ACETAMINOPHEN [Concomitant]
  2. ONDANSETRON [Concomitant]
  3. CLOFARABINE (CLOFARABINE) SOLUTION FOR INFUSION [Suspect]
     Indication: ACUTE LYMPHOCYTIC LEUKAEMIA
     Dosage: 85 MG, QDX5, INTRAVENOUS
     Route: 042
     Dates: start: 20100417, end: 20100421
  4. ETOPOSIDE [Suspect]
     Indication: ACUTE LYMPHOCYTIC LEUKAEMIA
     Dosage: 210 MG, QDX5, INTRAVENOUS
     Route: 042
     Dates: start: 20100417, end: 20100421
  5. METOCLOPRAMIDE [Concomitant]
  6. ALLOPURINOL [Concomitant]
  7. MORPHINE [Concomitant]
  8. METHOTREXATE [Suspect]
     Indication: ACUTE LYMPHOCYTIC LEUKAEMIA
     Dosage: (12 MG, ONCE, INTRATHECAL) (15 MG, ONCE, INTRATHECAL)
     Route: 037
     Dates: start: 20100430, end: 20100430
  9. METHOTREXATE [Suspect]
     Indication: ACUTE LYMPHOCYTIC LEUKAEMIA
     Dosage: (12 MG, ONCE, INTRATHECAL) (15 MG, ONCE, INTRATHECAL)
     Route: 037
     Dates: start: 20100415, end: 20100415
  10. VINCRISTINE [Suspect]
     Indication: ACUTE LYMPHOCYTIC LEUKAEMIA
     Dosage: 2 MG, ONCE, INTRAVENOUS
     Route: 042
     Dates: start: 20100510, end: 20100510
  11. IOVERSOL (IOVERSOL) [Concomitant]
  12. LORAZEPAM [Concomitant]
  13. CYCLOPHOSPHAMIDE [Suspect]
     Indication: ACUTE LYMPHOCYTIC LEUKAEMIA
     Dosage: 935 MG, QDX5, INTRAVENOUS
     Route: 042
     Dates: start: 20100418, end: 20100422
  14. DIPHENHYDRAMINE (DIPHENHYDRAMINE, SODIUM CITRATE) [Concomitant]
  15. FLUCONAZOLE [Concomitant]

REACTIONS (11)
  - BONE MARROW FAILURE [None]
  - LUNG NEOPLASM [None]
  - INFUSION SITE ERYTHEMA [None]
  - INFUSION SITE PAIN [None]
  - MENTAL STATUS CHANGES [None]
  - INFUSION SITE WARMTH [None]
  - HAEMORRHAGE INTRACRANIAL [None]
  - FEBRILE NEUTROPENIA [None]
  - INFUSION SITE SWELLING [None]
  - MULTI-ORGAN FAILURE [None]
  - VENOUS THROMBOSIS [None]
